FAERS Safety Report 17397120 (Version 2)
Quarter: 2024Q1

REPORT INFORMATION
  Report Type: Spontaneous
  Country: US (occurrence: US)
  Receive Date: 20200210
  Receipt Date: 20240209
  Transmission Date: 20240410
  Serious: No
  Sender: FDA-Public Use
  Company Number: US-VERTEX PHARMACEUTICALS-2020-002032

PATIENT
  Sex: Female

DRUGS (3)
  1. KALYDECO [Suspect]
     Active Substance: IVACAFTOR
     Indication: Cystic fibrosis
     Dosage: 150 MG, BID
     Route: 048
     Dates: start: 20181207, end: 202002
  2. PULMOZYME [Concomitant]
     Active Substance: DORNASE ALFA
  3. CAYSTON [Concomitant]
     Active Substance: AZTREONAM

REACTIONS (5)
  - Staphylococcal infection [Not Recovered/Not Resolved]
  - Influenza [Not Recovered/Not Resolved]
  - Nephrolithiasis [Not Recovered/Not Resolved]
  - Product dose omission issue [Unknown]
  - Product availability issue [Unknown]

NARRATIVE: CASE EVENT DATE: 20200101
